FAERS Safety Report 16457737 (Version 4)
Quarter: 2019Q3

REPORT INFORMATION
  Report Type: Report from Study
  Country: BR (occurrence: BR)
  Receive Date: 20190620
  Receipt Date: 20190829
  Transmission Date: 20191004
  Serious: Yes (Hospitalization)
  Sender: FDA-Public Use
  Company Number: BR-ROCHE-2335002

PATIENT
  Age: 26 Year
  Sex: Female
  Weight: 54.9 kg

DRUGS (14)
  1. BETA ALANINE [Concomitant]
     Route: 048
     Dates: start: 20181123
  2. CREATINE [Concomitant]
     Active Substance: CREATINE
     Route: 048
     Dates: start: 20181123
  3. ESTRADIOL. [Concomitant]
     Active Substance: ESTRADIOL
     Route: 048
     Dates: start: 20180309, end: 20190116
  4. EURYCOMA LONGIFOLIA [Concomitant]
     Route: 048
     Dates: start: 20181123
  5. OCRELIZUMAB. [Suspect]
     Active Substance: OCRELIZUMAB
     Indication: RELAPSING-REMITTING MULTIPLE SCLEROSIS
     Dosage: TWO 300-MILLIGRAM (MG) INFUSIONS (INFUSION LENGTH=2.5 HOURS) ON DAYS 1 AND 15, FOLLOWED BY ONE 600-M
     Route: 042
     Dates: start: 20180109
  6. METHYLPREDNISOLONE. [Suspect]
     Active Substance: METHYLPREDNISOLONE
     Indication: PREMEDICATION
     Dosage: SUBSEQUENT DOSES ON 23/JAN/2018, 27/JUN/2018, 12/DEC/2018 AND 27/MAY/2019.
     Route: 042
  7. LORATADINA [Concomitant]
     Active Substance: LORATADINE
     Indication: PREMEDICATION
     Dosage: SUBSEQUENT DOSES ON 23/JAN/2018, 27/JUN/2018, 12/DEC/2018 AND 27/MAY/2019.
     Route: 048
  8. ACYCLOVIR [ACICLOVIR] [Concomitant]
     Active Substance: ACYCLOVIR
     Route: 065
  9. GINGER [ZINGIBER OFFICINALE] [Concomitant]
     Active Substance: GINGER
     Route: 048
     Dates: start: 20181123
  10. PARACETAMOL [Concomitant]
     Active Substance: ACETAMINOPHEN
     Indication: PREMEDICATION
     Dosage: SUBSEQUENT DOSES ON 23/JAN/2018, 27/JUN/2018, 12/DEC/2018 AND 27/MAY/2019.
     Route: 048
  11. GLUTAMINE [Concomitant]
     Active Substance: GLUTAMINE
     Route: 048
     Dates: start: 20181123
  12. OCRELIZUMAB. [Suspect]
     Active Substance: OCRELIZUMAB
     Dosage: MOST RECENT DOSE ON 27/MAY/2019
     Route: 042
  13. TAURINE [Concomitant]
     Active Substance: TAURINE
     Route: 048
     Dates: start: 20181123
  14. ESTRADIOL. [Concomitant]
     Active Substance: ESTRADIOL
     Route: 048

REACTIONS (1)
  - Meningitis bacterial [Recovered/Resolved]

NARRATIVE: CASE EVENT DATE: 20190601
